FAERS Safety Report 16131941 (Version 1)
Quarter: 2019Q1

REPORT INFORMATION
  Report Type: Spontaneous
  Country: CN (occurrence: CN)
  Receive Date: 20190329
  Receipt Date: 20190329
  Transmission Date: 20190418
  Serious: Yes (Other)
  Sender: FDA-Public Use
  Company Number: CN-BAXTER-2019BAX006079

PATIENT
  Age: 57 Year
  Sex: Female
  Weight: 49 kg

DRUGS (5)
  1. TAXOTERE [Suspect]
     Active Substance: DOCETAXEL
     Indication: BREAST CANCER FEMALE
     Dosage: DOCETAXEL INJECTION (TAXOTERE) 106MG + NS 250ML, FIRST CHEMOTHERAPY
     Route: 041
     Dates: start: 20190221, end: 20190221
  2. RUIBAI [Suspect]
     Active Substance: MOLGRAMOSTIM
     Indication: ADVERSE EVENT
     Route: 058
  3. 0.9% SODIUM CHLORIDE INJECTION [Suspect]
     Active Substance: SODIUM CHLORIDE
     Indication: MEDICATION DILUTION
     Dosage: CYCLOPHOSPHAMIDE FOR INJECTION (ENDOXAN CTX) 820MG + NS 45ML, FIRST CHEMOTHERAPY
     Route: 042
     Dates: start: 20190221, end: 20190221
  4. 0.9% SODIUM CHLORIDE INJECTION [Suspect]
     Active Substance: SODIUM CHLORIDE
     Dosage: DOCETAXEL INJECTION (TAXOTERE) 106MG + NS 250ML, FIRST CHEMOTHERAPY
     Route: 041
     Dates: start: 20190221, end: 20190221
  5. ENDOXAN [Suspect]
     Active Substance: CYCLOPHOSPHAMIDE
     Indication: BREAST CANCER FEMALE
     Dosage: CYCLOPHOSPHAMIDE FOR INJECTION (ENDOXAN CTX) 820MG + NS 45ML, FIRST CHEMOTHERAPY
     Route: 042
     Dates: start: 20190221, end: 20190221

REACTIONS (1)
  - Agranulocytosis [Recovered/Resolved]

NARRATIVE: CASE EVENT DATE: 20190227
